FAERS Safety Report 14608843 (Version 1)
Quarter: 2018Q1

REPORT INFORMATION
  Report Type: Spontaneous
  Country: CN (occurrence: CN)
  Receive Date: 20180307
  Receipt Date: 20180307
  Transmission Date: 20180509
  Serious: Yes (Hospitalization)
  Sender: FDA-Public Use
  Company Number: CN-PFIZER INC-2018091412

PATIENT
  Age: 71 Year
  Sex: Female

DRUGS (6)
  1. DIFLUCAN [Suspect]
     Active Substance: FLUCONAZOLE
     Indication: INFECTION
     Dosage: 200 MG, 1X/DAY
     Route: 048
     Dates: start: 20170905, end: 20170920
  2. SHUPEIDA (MOXIFLOXACIN) [Suspect]
     Active Substance: MOXIFLOXACIN
     Indication: INFECTION
     Dosage: 0.4 G, 1X/DAY
     Route: 041
     Dates: start: 20170923, end: 20171010
  3. MILLPLAN [Concomitant]
     Indication: INFECTION
     Dosage: 0.5 G, 1X/DAY
     Route: 041
     Dates: start: 20171010, end: 20171018
  4. DIFLUCAN [Suspect]
     Active Substance: FLUCONAZOLE
     Indication: INFECTION
     Dosage: 0.2 G, 1X/DAY
     Route: 041
     Dates: start: 20170920, end: 20171018
  5. KEFADIM [Concomitant]
     Indication: INFECTION
     Dosage: 2 G, 1X/DAY
     Route: 041
     Dates: start: 20170903, end: 20170917
  6. TAZOCIN [Concomitant]
     Active Substance: PIPERACILLIN SODIUM\TAZOBACTAM SODIUM
     Indication: INFECTION
     Dosage: 4.5 G, 1X/DAY
     Route: 041
     Dates: start: 20170917, end: 20170924

REACTIONS (5)
  - Drug-induced liver injury [Recovered/Resolved]
  - Hepatocellular injury [Recovered/Resolved]
  - Hepatic enzyme increased [Recovered/Resolved]
  - Ischaemia [Recovered/Resolved]
  - Hypoxia [Recovered/Resolved]

NARRATIVE: CASE EVENT DATE: 20171002
